FAERS Safety Report 7111203-X (Version None)
Quarter: 2010Q4

REPORT INFORMATION
  Report Type: 
  Country: None (occurrence: None)
  Receive Date: 20101112
  Receipt Date: 20101105
  Transmission Date: 20110411
  Serious: Yes (Hospitalization, Other)
  Sender: FDA-Public Use
  Company Number: 020005

PATIENT
  Age: 60 Year
  Sex: Female

DRUGS (3)
  1. KEPPRA [Suspect]
     Indication: EPILEPSY
     Dosage: (500 MG BID ORAL)
     Route: 048
     Dates: start: 20100924
  2. ALEVIATIN /00017401/ [Concomitant]
  3. DEPAKENE /00228502/ [Concomitant]

REACTIONS (2)
  - FALL [None]
  - FEMUR FRACTURE [None]
